FAERS Safety Report 9765250 (Version 1)
Quarter: 2013Q4

REPORT INFORMATION
  Report Type: Spontaneous
  Country: CA (occurrence: None)
  Receive Date: 20131216
  Receipt Date: 20131216
  Transmission Date: 20140711
  Serious: Yes (Disabling)
  Sender: FDA-Public Use
  Company Number: None

PATIENT
  Age: 29 Year
  Sex: Female
  Weight: 90.72 kg

DRUGS (2)
  1. MACROBID [Suspect]
     Indication: URINARY TRACT INFECTION
     Route: 048
  2. MACROBID [Suspect]
     Indication: PROPHYLAXIS URINARY TRACT INFECTION
     Route: 048

REACTIONS (36)
  - Nerve injury [None]
  - Fibromyalgia [None]
  - Neuralgia [None]
  - Fungal infection [None]
  - Infection [None]
  - Fatigue [None]
  - Alopecia [None]
  - Arthralgia [None]
  - Headache [None]
  - Headache [None]
  - Asthenia [None]
  - Anxiety [None]
  - Tinnitus [None]
  - Dizziness [None]
  - Vertigo [None]
  - Nausea [None]
  - Genital pain [None]
  - Dyspnoea [None]
  - Confusional state [None]
  - Feeling abnormal [None]
  - Muscle spasms [None]
  - Asthma [None]
  - Pain in jaw [None]
  - Ear pain [None]
  - Costochondritis [None]
  - Menstruation irregular [None]
  - Palpitations [None]
  - Tremor [None]
  - Dysuria [None]
  - Insomnia [None]
  - Photophobia [None]
  - Skin exfoliation [None]
  - Back pain [None]
  - Skin irritation [None]
  - Pruritus [None]
  - Activities of daily living impaired [None]
